FAERS Safety Report 4580166-3 (Version None)
Quarter: 2005Q1

REPORT INFORMATION
  Report Type: 
  Country: None (occurrence: None)
  Receive Date: 20050214
  Receipt Date: 20050208
  Transmission Date: 20050727
  Serious: Yes (Death)
  Sender: FDA-Public Use
  Company Number: US-JNJFOC-20050202395

PATIENT
  Sex: Female

DRUGS (1)
  1. DURAGESIC [Suspect]
     Route: 049

REACTIONS (2)
  - DRUG ABUSER [None]
  - INTENTIONAL MISUSE [None]
